FAERS Safety Report 6027669-2 (Version None)
Quarter: 2009Q1

REPORT INFORMATION
  Report Type: 
  Country: None (occurrence: None)
  Receive Date: 20090105
  Receipt Date: 20081229
  Transmission Date: 20090719
  Serious: Yes (Other)
  Sender: FDA-Public Use
  Company Number: CH-TEVA-183146ISR

PATIENT
  Age: 36 Year
  Sex: Female

DRUGS (1)
  1. DOBUTAMINE HCL [Suspect]

REACTIONS (2)
  - ISCHAEMIA [None]
  - VENTRICULAR DYSFUNCTION [None]
